FAERS Safety Report 23986849 (Version 1)
Quarter: 2024Q2

REPORT INFORMATION
  Report Type: Spontaneous
  Country: US (occurrence: US)
  Receive Date: 20240618
  Receipt Date: 20240618
  Transmission Date: 20240717
  Serious: No
  Sender: FDA-Public Use
  Company Number: US-PFIZER INC-202400194033

PATIENT
  Age: 79 Year
  Sex: Female

DRUGS (7)
  1. PAXLOVID [Suspect]
     Active Substance: NIRMATRELVIR\RITONAVIR
     Indication: COVID-19 treatment
     Dosage: UNK
     Dates: start: 20240602, end: 20240606
  2. ALVESCO [Concomitant]
     Active Substance: CICLESONIDE
  3. ALBUTEROL [Concomitant]
     Active Substance: ALBUTEROL
  4. TYLENOL [Concomitant]
     Active Substance: ACETAMINOPHEN
  5. ESTRADIOL [Concomitant]
     Active Substance: ESTRADIOL
  6. PROGESTERONE [Concomitant]
     Active Substance: PROGESTERONE
  7. LEVOTHYROXINE [Concomitant]
     Active Substance: LEVOTHYROXINE\LEVOTHYROXINE SODIUM

REACTIONS (2)
  - COVID-19 [Not Recovered/Not Resolved]
  - Disease recurrence [Not Recovered/Not Resolved]

NARRATIVE: CASE EVENT DATE: 20240609
